FAERS Safety Report 8581973 (Version 4)
Quarter: 2012Q4

REPORT INFORMATION
  Report Type: 
  Country: FR (occurrence: FR)
  Receive Date: 20120528
  Receipt Date: 20120917
  Transmission Date: 20130627
  Serious: Yes (Death, Hospitalization, Other)
  Sender: FDA-Public Use
  Company Number: PHHY2012FR043539

PATIENT
  Age: 74 Year
  Sex: Female

DRUGS (3)
  1. GLIVEC [Suspect]
     Indication: CHRONIC MYELOID LEUKAEMIA
     Dosage: UNK UKN, UNK
     Route: 048
     Dates: end: 2007
  2. GLIVEC [Suspect]
     Route: 048
     Dates: start: 200908, end: 201108
  3. OSTRAM [Concomitant]
     Dosage: UNK UKN, UNK
     Route: 048

REACTIONS (22)
  - Cerebral amyloid angiopathy [Fatal]
  - Cerebral haematoma [Fatal]
  - Brain herniation [Fatal]
  - Aphasia [Fatal]
  - Mutism [Fatal]
  - Movement disorder [Unknown]
  - Vomiting [Unknown]
  - Quadriparesis [Unknown]
  - Pyramidal tract syndrome [Unknown]
  - Extensor plantar response [Unknown]
  - Neurological decompensation [Unknown]
  - Thrombophlebitis [Unknown]
  - Coma scale abnormal [Unknown]
  - Meningorrhagia [Unknown]
  - Subarachnoid haemorrhage [Unknown]
  - Dementia [Unknown]
  - Memory impairment [Unknown]
  - Blood pressure systolic increased [Unknown]
  - Agitation [Unknown]
  - Aggression [Unknown]
  - Disorientation [Unknown]
  - Disturbance in attention [Unknown]
